FAERS Safety Report 14762630 (Version 1)
Quarter: 2018Q2

REPORT INFORMATION
  Report Type: Spontaneous
  Country: US (occurrence: US)
  Receive Date: 20180416
  Receipt Date: 20180416
  Transmission Date: 20180711
  Serious: No
  Sender: FDA-Public Use
  Company Number: US-TEVA-2018-US-880347

PATIENT
  Sex: Female

DRUGS (2)
  1. QVAR [Suspect]
     Active Substance: BECLOMETHASONE DIPROPIONATE
     Dosage: 1 PUFF TWICE DAILY
     Route: 065
  2. VENTOLIN [Suspect]
     Active Substance: ALBUTEROL SULFATE
     Route: 065

REACTIONS (2)
  - Bronchitis [Unknown]
  - Insomnia [Unknown]

NARRATIVE: CASE EVENT DATE: 20180406
